FAERS Safety Report 9677562 (Version 1)
Quarter: 2013Q4

REPORT INFORMATION
  Report Type: Spontaneous
  Country: US (occurrence: None)
  Receive Date: 20131107
  Receipt Date: 20131107
  Transmission Date: 20140711
  Serious: No
  Sender: FDA-Public Use
  Company Number: None

PATIENT
  Age: 66 Year
  Sex: Female
  Weight: 77.11 kg

DRUGS (1)
  1. EFFICIENT -PRASUGREL- 10MG LILLY [Suspect]
     Indication: STENT PLACEMENT
     Route: 048
     Dates: start: 20130910, end: 20131010

REACTIONS (3)
  - Rash [None]
  - Joint swelling [None]
  - Blindness [None]
